FAERS Safety Report 5477892-0 (Version None)
Quarter: 2007Q4

REPORT INFORMATION
  Report Type: 
  Country: None (occurrence: None)
  Receive Date: 20071002
  Receipt Date: 20070913
  Transmission Date: 20080405
  Serious: Yes (Other)
  Sender: FDA-Public Use
  Company Number: 2007EU002049

PATIENT
  Age: 54 Year
  Sex: Female

DRUGS (3)
  1. TACROLIMUS [Suspect]
     Indication: RENAL TRANSPLANT
  2. METFORMIN(METFORMIN HYDROCHLORIDE) [Suspect]
     Indication: DIABETES MELLITUS
  3. INSULIN (INSULIN HUMAN) [Concomitant]

REACTIONS (1)
  - ANAEMIA HAEMOLYTIC AUTOIMMUNE [None]
